FAERS Safety Report 14140153 (Version 3)
Quarter: 2018Q3

REPORT INFORMATION
  Report Type: Spontaneous
  Country: MT (occurrence: MT)
  Receive Date: 20171030
  Receipt Date: 20180907
  Transmission Date: 20181010
  Serious: Yes (Life-Threatening, Hospitalization, Other)
  Sender: FDA-Public Use
  Company Number: MT-ACCORD-060271

PATIENT
  Age: 81 Year
  Sex: Female

DRUGS (2)
  1. BENDROFLUMETHIAZIDE [Concomitant]
     Active Substance: BENDROFLUMETHIAZIDE
     Indication: HYPERTENSION
  2. QUETIAPINE. [Suspect]
     Active Substance: QUETIAPINE
     Indication: DEMENTIA WITH LEWY BODIES

REACTIONS (3)
  - Neuroleptic malignant syndrome [Recovered/Resolved]
  - Malignant hypertension [Recovered/Resolved]
  - Microangiopathic haemolytic anaemia [Recovering/Resolving]
